FAERS Safety Report 4797406-8 (Version None)
Quarter: 2005Q4

REPORT INFORMATION
  Report Type: 
  Country: None (occurrence: None)
  Receive Date: 20051011
  Receipt Date: 20051011
  Transmission Date: 20060501
  Serious: Yes (Other)
  Sender: FDA-Public Use
  Company Number: None

PATIENT
  Age: 80 Year
  Sex: Male
  Weight: 82.1 kg

DRUGS (1)
  1. DORZOLAMIDE HCL [Suspect]
     Indication: GLAUCOMA
     Dosage: 1D OSTID,1D OSTID,OPHTHALM
     Route: 047
     Dates: start: 20050606, end: 20050801

REACTIONS (1)
  - DERMATITIS CONTACT [None]
